FAERS Safety Report 7640893-8 (Version None)
Quarter: 2011Q3

REPORT INFORMATION
  Report Type: 
  Country: None (occurrence: None)
  Receive Date: 20110728
  Receipt Date: 20110728
  Transmission Date: 20111222
  Serious: Yes (Other)
  Sender: FDA-Public Use
  Company Number: None

PATIENT
  Age: 39 Year
  Sex: Female
  Weight: 93.893 kg

DRUGS (1)
  1. ZYRTEC-D 12 HOUR [Suspect]

REACTIONS (5)
  - PRURITUS [None]
  - NAUSEA [None]
  - HEADACHE [None]
  - DIZZINESS [None]
  - ARTHRALGIA [None]
